FAERS Safety Report 10085058 (Version 4)
Quarter: 2014Q2

REPORT INFORMATION
  Report Type: Report from Study
  Country: GB (occurrence: GB)
  Receive Date: 20140417
  Receipt Date: 20140513
  Transmission Date: 20141212
  Serious: Yes (Other)
  Sender: FDA-Public Use
  Company Number: GB-BRISTOL-MYERS SQUIBB COMPANY-20505608

PATIENT
  Age: 20 Year
  Sex: Female

DRUGS (9)
  1. ABATACEPT SUBQ INJECTION 125MG/ML [Suspect]
     Indication: POLYARTHRITIS
     Route: 058
     Dates: start: 20130310
  2. ABATACEPT SUBQ INJECTION 125MG/ML [Suspect]
     Indication: RHEUMATOID ARTHRITIS
     Route: 058
     Dates: start: 20130310
  3. ABATACEPT [Suspect]
     Indication: POLYARTHRITIS
     Route: 042
  4. ABATACEPT [Suspect]
     Indication: RHEUMATOID ARTHRITIS
     Route: 042
  5. METHOTREXATE [Concomitant]
  6. NAPROXEN [Concomitant]
  7. OMEPRAZOLE [Concomitant]
  8. CYCLIZINE [Concomitant]
  9. DOMPERIDONE [Concomitant]

REACTIONS (3)
  - Abortion spontaneous [Unknown]
  - Maternal exposure during pregnancy [Unknown]
  - Drug dose omission [Unknown]
